FAERS Safety Report 6551815-5 (Version None)
Quarter: 2010Q1

REPORT INFORMATION
  Report Type: 
  Country: None (occurrence: None)
  Receive Date: 20100126
  Receipt Date: 20100121
  Transmission Date: 20100710
  Serious: Yes (Hospitalization)
  Sender: FDA-Public Use
  Company Number: US-ELI_LILLY_AND_COMPANY-US201001004767

PATIENT
  Sex: Female

DRUGS (1)
  1. HUMALOG MIX 75/25 [Suspect]
     Dosage: UNK, 3/D
     Dates: start: 20090701

REACTIONS (11)
  - ABNORMAL BEHAVIOUR [None]
  - ARTERIAL DISORDER [None]
  - ARTHRALGIA [None]
  - HYPOKINESIA [None]
  - MEMORY IMPAIRMENT [None]
  - MUSCULOSKELETAL STIFFNESS [None]
  - OVERDOSE [None]
  - PAIN [None]
  - PNEUMONIA [None]
  - RENAL DISORDER [None]
  - SPINAL DISORDER [None]
